FAERS Safety Report 6318296-8 (Version None)
Quarter: 2009Q3

REPORT INFORMATION
  Report Type: 
  Country: None (occurrence: None)
  Receive Date: 20090821
  Receipt Date: 20090812
  Transmission Date: 20100115
  Serious: Yes (Hospitalization)
  Sender: FDA-Public Use
  Company Number: US-TYCO HEALTHCARE/MALLINCKRODT-T200901535

PATIENT
  Sex: Male

DRUGS (10)
  1. ACETAMINOPHEN AND HYDROCODONE BITARTRATE [Suspect]
     Indication: PAIN
     Dosage: 1 TO 2 Q 6 HRS, MAX 6 PER DAY
     Route: 048
     Dates: start: 20090101, end: 20090201
  2. ACETAMINOPHEN AND HYDROCODONE BITARTRATE [Suspect]
     Dosage: 1 TO 2 Q 6 HRS, MAX 6 PER DAY
     Route: 048
     Dates: start: 20090706
  3. SIMVASTATIN [Concomitant]
     Dosage: 20 MG / 40MG, UNK
  4. AMBIEN [Concomitant]
     Dosage: 12.5 MG, UNK
  5. ASPIRIN [Concomitant]
     Dosage: 325 MG, UNK
  6. PLAVIX [Concomitant]
     Dosage: UNK
  7. XANAX [Concomitant]
     Dosage: UNK
  8. RANEXA [Concomitant]
     Dosage: UNK
  9. FELODIPINE [Concomitant]
     Dosage: 10 MG, UNK
  10. LEXAPRO [Concomitant]
     Dosage: 10 MG, UNK

REACTIONS (4)
  - MALAISE [None]
  - MEMORY IMPAIRMENT [None]
  - VISION BLURRED [None]
  - VISUAL IMPAIRMENT [None]
